FAERS Safety Report 25024261 (Version 2)
Quarter: 2025Q1

REPORT INFORMATION
  Report Type: Spontaneous
  Country: JP (occurrence: JP)
  Receive Date: 20250228
  Receipt Date: 20250312
  Transmission Date: 20250409
  Serious: Yes (Other)
  Sender: ROCHE
  Company Number: JP-CHUGAI-2025004374

PATIENT
  Age: 12 Year
  Sex: Male
  Weight: 39 kg

DRUGS (2)
  1. HEMLIBRA [Suspect]
     Active Substance: EMICIZUMAB-KXWH
     Indication: Haemophilia A without inhibitors
     Dosage: 90 MILLIGRAM, ONCE/2WEEKS
     Route: 058
     Dates: start: 20230201
  2. HEMLIBRA [Suspect]
     Active Substance: EMICIZUMAB-KXWH
     Dosage: 120 MILLIGRAM, ONCE/2WEEKS
     Route: 058
     Dates: start: 20250107

REACTIONS (1)
  - Haemorrhage [Unknown]

NARRATIVE: CASE EVENT DATE: 20241218
